FAERS Safety Report 5633682-7 (Version None)
Quarter: 2008Q1

REPORT INFORMATION
  Report Type: 
  Country: None (occurrence: None)
  Receive Date: 20080221
  Receipt Date: 20080211
  Transmission Date: 20080703
  Serious: Yes (Death)
  Sender: FDA-Public Use
  Company Number: AU-SANOFI-SYNTHELABO-A01200801584

PATIENT
  Age: 47 Year
  Sex: Female

DRUGS (1)
  1. STILNOX [Suspect]
     Indication: INSOMNIA
     Dosage: 10 MG IN THE AFTERNOON, EVENING AND NEXT MORNING
     Route: 048
     Dates: start: 20071204, end: 20071205

REACTIONS (4)
  - OVERDOSE [None]
  - ROAD TRAFFIC ACCIDENT [None]
  - SOMNAMBULISM [None]
  - SOMNOLENCE [None]
